FAERS Safety Report 19621540 (Version 1)
Quarter: 2021Q3

REPORT INFORMATION
  Report Type: Spontaneous
  Country: FR (occurrence: FR)
  Receive Date: 20210728
  Receipt Date: 20210728
  Transmission Date: 20211014
  Serious: Yes (Hospitalization)
  Sender: FDA-Public Use
  Company Number: FR-TEVA-2021-FR-1937038

PATIENT
  Age: 52 Year
  Sex: Male

DRUGS (6)
  1. ATORVASTATINE ACCORD 80 MG, COMPRIME PELLICULE [Suspect]
     Active Substance: ATORVASTATIN
     Indication: HYPOCHOLESTEROLAEMIA
     Dosage: 80 MILLIGRAM DAILY;  IN THE EVENING
     Route: 048
     Dates: start: 20171115, end: 20201115
  2. ASPIRINE PROTECT [Concomitant]
     Active Substance: ASPIRIN
  3. BISOPROLOL (FUMARATE ACIDE DE) [Concomitant]
     Active Substance: BISOPROLOL FUMARATE
  4. EZETIMIBE. [Suspect]
     Active Substance: EZETIMIBE
     Indication: HYPOCHOLESTEROLAEMIA
     Dosage: 80 MILLIGRAM DAILY;  IN THE EVENING
     Route: 048
     Dates: start: 20171115, end: 20201115
  5. RAMIPRIL. [Concomitant]
     Active Substance: RAMIPRIL
  6. CHOLECALCIFEROL [Concomitant]
     Active Substance: CHOLECALCIFEROL

REACTIONS (2)
  - Myositis [Recovering/Resolving]
  - Rhabdomyolysis [Recovering/Resolving]

NARRATIVE: CASE EVENT DATE: 20201204
